FAERS Safety Report 8274495-X (Version None)
Quarter: 2012Q2

REPORT INFORMATION
  Report Type: 
  Country: None (occurrence: None)
  Receive Date: 20120411
  Receipt Date: 20120402
  Transmission Date: 20120825
  Serious: Yes (Other)
  Sender: FDA-Public Use
  Company Number: FR-ASTRAZENECA-2012SE17360

PATIENT
  Age: 50 Year
  Sex: Female
  Weight: 100 kg

DRUGS (3)
  1. QUETIAPINE FUMARATE [Suspect]
     Indication: BIPOLAR I DISORDER
     Route: 048
     Dates: start: 20120212, end: 20120212
  2. DEPAKOTE [Concomitant]
  3. PROZAC [Concomitant]

REACTIONS (14)
  - MASKED FACIES [None]
  - QUALITY OF LIFE DECREASED [None]
  - TREMOR [None]
  - NIGHTMARE [None]
  - LOSS OF CONSCIOUSNESS [None]
  - HYPERSOMNIA [None]
  - HYPERSENSITIVITY [None]
  - FACE OEDEMA [None]
  - DIZZINESS [None]
  - SCREAMING [None]
  - COLD SWEAT [None]
  - BUCCOGLOSSAL SYNDROME [None]
  - ARRHYTHMIA [None]
  - SUICIDAL IDEATION [None]
